FAERS Safety Report 11157102 (Version 1)
Quarter: 2015Q2

REPORT INFORMATION
  Report Type: Spontaneous
  Country: US (occurrence: US)
  Receive Date: 20150602
  Receipt Date: 20150602
  Transmission Date: 20150821
  Serious: No
  Sender: FDA-Public Use
  Company Number: US-GLAXOSMITHKLINE-US2015GSK054816

PATIENT
  Sex: Male

DRUGS (1)
  1. MUPIROCIN CREAM [Suspect]
     Active Substance: MUPIROCIN
     Indication: PRODUCT USED FOR UNKNOWN INDICATION
     Dosage: UNK, U
     Route: 045

REACTIONS (2)
  - Off label use [Unknown]
  - Incorrect route of drug administration [Unknown]
